FAERS Safety Report 23297711 (Version 1)
Quarter: 2023Q4

REPORT INFORMATION
  Report Type: Spontaneous
  Country: FR (occurrence: FR)
  Receive Date: 20231214
  Receipt Date: 20231214
  Transmission Date: 20240110
  Serious: Yes (Hospitalization)
  Sender: FDA-Public Use
  Company Number: None

PATIENT
  Age: 41 Year

DRUGS (3)
  1. PROPRANOLOL [Suspect]
     Active Substance: PROPRANOLOL HYDROCHLORIDE
     Indication: Wrong patient
     Dosage: 40 MG PROPRANOLOL
     Route: 048
     Dates: start: 20231101, end: 20231101
  2. SERTRALINE HYDROCHLORIDE [Suspect]
     Active Substance: SERTRALINE HYDROCHLORIDE
     Indication: Wrong patient
     Dosage: 50 MG OF SERTRALINE
     Route: 048
     Dates: start: 20231101, end: 20231101
  3. CLOZAPINE [Suspect]
     Active Substance: CLOZAPINE
     Indication: Wrong patient
     Dosage: 1.5 TABLETS OF CLOZAPINE 100 MG, SCORED TABLET.
     Route: 048
     Dates: start: 20231101, end: 20231101

REACTIONS (3)
  - Hypotension [Recovered/Resolved]
  - Wrong patient [Recovered/Resolved]
  - Somnolence [Recovered/Resolved]

NARRATIVE: CASE EVENT DATE: 20231101
